FAERS Safety Report 5175353-X (Version None)
Quarter: 2006Q4

REPORT INFORMATION
  Report Type: 
  Country: None (occurrence: None)
  Receive Date: 20061212
  Receipt Date: 20061212
  Transmission Date: 20070319
  Serious: Yes (Hospitalization)
  Sender: FDA-Public Use
  Company Number: None

PATIENT
  Age: 70 Year
  Sex: Female

DRUGS (1)
  1. DAPTOMYCIN [Suspect]
     Dosage: 380MG DAILY IVPB
     Route: 042

REACTIONS (1)
  - MYOSITIS [None]
